FAERS Safety Report 17244414 (Version 5)
Quarter: 2020Q2

REPORT INFORMATION
  Report Type: Report from Study
  Country: AU (occurrence: AU)
  Receive Date: 20200107
  Receipt Date: 20200629
  Transmission Date: 20200713
  Serious: Yes (Hospitalization)
  Sender: FDA-Public Use
  Company Number: AU-EXELIXIS-XL18419026328

PATIENT
  Age: 61 Year
  Sex: Male
  Weight: 78.1 kg

DRUGS (8)
  1. CABOZANTINIB [Suspect]
     Active Substance: CABOZANTINIB
     Indication: RENAL CELL CARCINOMA
     Dosage: 60 MG, QD
     Route: 048
     Dates: start: 20190730
  2. OXYCODONE HYDROCHLORIDE. [Concomitant]
     Active Substance: OXYCODONE HYDROCHLORIDE
     Indication: BONE PAIN
     Dosage: 30 MG, BID
     Route: 048
     Dates: start: 20190924
  3. CB-839 OR PLACEBO [Suspect]
     Active Substance: TELAGLENASTAT
     Indication: RENAL CELL CARCINOMA
     Dosage: 800 MG, BID
     Route: 048
     Dates: start: 20190730
  4. MOVICOL [Concomitant]
     Active Substance: POLYETHYLENE GLYCOL 3350\POTASSIUM CHLORIDE\SODIUM BICARBONATE\SODIUM CHLORIDE
     Indication: CONSTIPATION
     Dosage: 13.8 MG, BID
     Route: 048
     Dates: start: 20191119
  5. RECTOGESIC [Concomitant]
     Indication: ANAL FISSURE
     Dosage: UNK, AS NECESSARY
     Route: 054
     Dates: start: 20191107
  6. CANDESARTAN. [Concomitant]
     Active Substance: CANDESARTAN
     Indication: HYPERTENSION
     Dosage: 8 MG, QD
     Route: 048
     Dates: start: 20190924
  7. RECTINOL [Concomitant]
     Active Substance: BENZOCAINE\BISMUTH SUBGALLATE\EPHEDRINE\EPINEPHRINE\ZINC OXIDE
     Indication: ANAL FISSURE
     Dosage: UNK
     Route: 054
     Dates: start: 20191104
  8. NALOXONE HCL [Concomitant]
     Active Substance: NALOXONE HYDROCHLORIDE
     Indication: BONE PAIN
     Dosage: 15 MG, BID
     Route: 048
     Dates: start: 20190924

REACTIONS (1)
  - Anal abscess [Recovered/Resolved]

NARRATIVE: CASE EVENT DATE: 20191213
